FAERS Safety Report 9626787 (Version 3)
Quarter: 2013Q4

REPORT INFORMATION
  Report Type: Spontaneous
  Country: IE (occurrence: IE)
  Receive Date: 20131016
  Receipt Date: 20131206
  Transmission Date: 20140711
  Serious: Yes (Other)
  Sender: FDA-Public Use
  Company Number: IE-GLAXOSMITHKLINE-B0931113A

PATIENT
  Age: 62 Year
  Sex: Male
  Weight: 89 kg

DRUGS (2)
  1. AVAMYS [Suspect]
     Indication: RHINITIS ALLERGIC
     Dosage: 4SPR PER DAY
     Route: 045
     Dates: start: 20121203, end: 20121205
  2. DECAPEPTYL [Concomitant]
     Dosage: 11.25MGM PER DAY

REACTIONS (1)
  - Oculogyric crisis [Recovered/Resolved]
